FAERS Safety Report 5259485-3 (Version None)
Quarter: 2007Q1

REPORT INFORMATION
  Report Type: 
  Country: None (occurrence: None)
  Receive Date: 20070305
  Receipt Date: 20070220
  Transmission Date: 20070707
  Serious: Yes (Other)
  Sender: FDA-Public Use
  Company Number: 2007US-05902

PATIENT
  Age: 23 Year
  Sex: Male

DRUGS (1)
  1. ISOTRETINOIN [Suspect]
     Indication: ACNE CYSTIC
     Dosage: 60 MG, QD, ORAL
     Route: 048
     Dates: start: 20051219, end: 20060505

REACTIONS (2)
  - CHEST PAIN [None]
  - COUGH [None]
